FAERS Safety Report 4524810-5 (Version None)
Quarter: 2004Q4

REPORT INFORMATION
  Report Type: 
  Country: None (occurrence: None)
  Receive Date: 20041208
  Receipt Date: 20041201
  Transmission Date: 20050328
  Serious: Yes (Hospitalization)
  Sender: FDA-Public Use
  Company Number: 200420734BWH

PATIENT
  Age: 75 Year
  Sex: Male
  Weight: 77.8 kg

DRUGS (2)
  1. CIPRO [Suspect]
     Indication: CANDIDURIA
     Dosage: 500 MG, ORAL
     Route: 048
     Dates: start: 20040916, end: 20040923
  2. CIPRO [Suspect]
     Indication: PSEUDOMONAS INFECTION
     Dosage: 500 MG, ORAL
     Route: 048
     Dates: start: 20040916, end: 20040923

REACTIONS (3)
  - FAT EMBOLISM [None]
  - NEPHRITIS INTERSTITIAL [None]
  - RENAL TUBULAR NECROSIS [None]
